FAERS Safety Report 4988985-6 (Version None)
Quarter: 2006Q2

REPORT INFORMATION
  Report Type: 
  Country: None (occurrence: None)
  Receive Date: 20060425
  Receipt Date: 20060412
  Transmission Date: 20061013
  Serious: Yes (Disabling, Other)
  Sender: FDA-Public Use
  Company Number: 2006050956

PATIENT
  Age: 63 Year
  Sex: Female
  Weight: 61.2356 kg

DRUGS (15)
  1. PREDNISONE TAB [Suspect]
     Indication: SINUSITIS
     Dates: start: 20040101
  2. BENADRYL [Suspect]
     Indication: ANAPHYLAXIS TREATMENT
  3. LYRICA [Suspect]
     Indication: BACK PAIN
     Dosage: 100 MG (50 MG, 2 IN 1 D)
     Dates: start: 20060411
  4. CORTISONE ACETATE [Suspect]
     Indication: INTERVERTEBRAL DISC PROTRUSION
  5. ECOTRIN (ACETYLSALICYLIC ACID) [Concomitant]
  6. VALSARTAN [Concomitant]
  7. PLAVIX [Concomitant]
  8. METOPROLOL [Concomitant]
  9. FOSAMAX [Concomitant]
  10. CALCIUM WITH VITAMIN D (CALCIUM PHOSPHATE, CALCIUM SODIUM LACTATE, ERG [Concomitant]
  11. MULTIPLE VITAMINS (ASCORBIC ACID, ERGOCALCIFEROL, FOLIC ACID, RETINOL, [Concomitant]
  12. OMEGA-3 (OMEGA-3 TRIGLYCERIDES) [Concomitant]
  13. DRUG, UNSPECIFIED [Concomitant]
  14. TYLENOL [Concomitant]
  15. ADVIL [Concomitant]

REACTIONS (9)
  - BACK PAIN [None]
  - DRUG EFFECT DECREASED [None]
  - DRUG HYPERSENSITIVITY [None]
  - DRY MOUTH [None]
  - INJECTION SITE NERVE DAMAGE [None]
  - OEDEMA PERIPHERAL [None]
  - REACTION TO COLOURING [None]
  - SOMNOLENCE [None]
  - SWELLING FACE [None]
